FAERS Safety Report 19486761 (Version 1)
Quarter: 2021Q3

REPORT INFORMATION
  Report Type: Spontaneous
  Country: US (occurrence: US)
  Receive Date: 20210702
  Receipt Date: 20210702
  Transmission Date: 20211014
  Serious: Yes (Other)
  Sender: FDA-Public Use
  Company Number: US-PFIZER INC-2021603644

PATIENT
  Age: 72 Year
  Sex: Female
  Weight: 85.73 kg

DRUGS (2)
  1. XELJANZ XR [Suspect]
     Active Substance: TOFACITINIB CITRATE
     Indication: RHEUMATOID ARTHRITIS
     Dosage: 11 MG, 1X/DAY
  2. XELJANZ XR [Suspect]
     Active Substance: TOFACITINIB CITRATE
     Indication: MYALGIA

REACTIONS (5)
  - Abdominal pain upper [Unknown]
  - Drug dependence [Unknown]
  - Pain [Unknown]
  - Weight increased [Unknown]
  - Malaise [Unknown]
